FAERS Safety Report 5481511-7 (Version None)
Quarter: 2007Q4

REPORT INFORMATION
  Report Type: 
  Country: None (occurrence: None)
  Receive Date: 20071010
  Receipt Date: 20070928
  Transmission Date: 20080405
  Serious: Yes (Hospitalization)
  Sender: FDA-Public Use
  Company Number: JP-BAYER-200715524GDS

PATIENT
  Age: 45 Year
  Sex: Female
  Weight: 59 kg

DRUGS (3)
  1. BUFFERIN [Suspect]
     Indication: ANTIPHOSPHOLIPID ANTIBODIES POSITIVE
     Route: 065
  2. RITODRINE HYDROCHLORIDE [Concomitant]
     Indication: UTERINE CONTRACTIONS ABNORMAL
     Route: 065
  3. HEPARIN [Concomitant]
     Indication: ANTIPHOSPHOLIPID ANTIBODIES POSITIVE
     Route: 065

REACTIONS (2)
  - ANTEPARTUM HAEMORRHAGE [None]
  - THREATENED LABOUR [None]
